FAERS Safety Report 7672358-1 (Version None)
Quarter: 2011Q3

REPORT INFORMATION
  Report Type: 
  Country: None (occurrence: None)
  Receive Date: 20110809
  Receipt Date: 20110801
  Transmission Date: 20111222
  Serious: Yes (Death, Hospitalization)
  Sender: FDA-Public Use
  Company Number: JP-AMGEN-JPNCT2011039168

PATIENT
  Age: 75 Year
  Sex: Male
  Weight: 51 kg

DRUGS (13)
  1. LANSOPRAZOLE [Concomitant]
     Route: 048
     Dates: end: 20110705
  2. OXALIPLATIN [Concomitant]
     Indication: COLORECTAL CANCER
     Dosage: UNK UNK, Q2WK
     Route: 041
     Dates: start: 20110111, end: 20110621
  3. EVIPROSTAT [Concomitant]
     Route: 048
     Dates: end: 20110705
  4. FLUOROURACIL [Concomitant]
     Dosage: UNK
     Route: 041
     Dates: start: 20110111, end: 20110621
  5. CONIEL [Concomitant]
     Route: 048
     Dates: end: 20110705
  6. PANITUMUMAB [Suspect]
     Indication: COLORECTAL CANCER
     Dosage: 6 MG/KG, Q2WK
     Route: 041
     Dates: start: 20110111, end: 20110621
  7. OXALIPLATIN [Concomitant]
     Route: 041
     Dates: start: 20110111, end: 20110621
  8. PRAVASTATIN SODIUM [Concomitant]
     Route: 048
     Dates: end: 20110705
  9. FLUOROURACIL [Concomitant]
     Indication: COLORECTAL CANCER
     Dosage: UNK
     Route: 040
     Dates: start: 20110111, end: 20110621
  10. LEUCOVORIN CALCIUM [Concomitant]
     Indication: COLORECTAL CANCER
     Dosage: UNK UNK, UNK
     Route: 041
     Dates: start: 20110111, end: 20110621
  11. LEUCOVORIN CALCIUM [Concomitant]
     Route: 041
     Dates: start: 20110111, end: 20110621
  12. MICARDIS [Concomitant]
     Route: 048
     Dates: end: 20110705
  13. DUTASTERIDE [Concomitant]
     Route: 048
     Dates: end: 20110705

REACTIONS (1)
  - INTERSTITIAL LUNG DISEASE [None]
